FAERS Safety Report 9228950 (Version 1)
Quarter: 2013Q2

REPORT INFORMATION
  Report Type: Spontaneous
  Country: PL (occurrence: PL)
  Receive Date: 20130412
  Receipt Date: 20130412
  Transmission Date: 20140414
  Serious: Yes (Other)
  Sender: FDA-Public Use
  Company Number: PL-BRISTOL-MYERS SQUIBB COMPANY-18747501

PATIENT
  Age: 31 Year
  Sex: Female

DRUGS (16)
  1. EFAVIRENZ [Suspect]
     Indication: HIV INFECTION
     Dosage: 15DEC12-18DEC03,18DEC03-04FEB04
     Dates: start: 20121215
  2. ATAZANAVIR [Suspect]
     Indication: HIV INFECTION
     Dosage: 15D04-5MR05,5MR05-15AP06,15AP-15DC,9AP-28JL08,28JL-14AG08,14AG08-15JA09,15JA-16N09,14JL-1S10,13FB12
     Dates: start: 20041215
  3. DIDANOSINE [Suspect]
     Indication: HIV INFECTION
     Dosage: 13SEP97-13FEB98?13FEB98-03MAR99
     Dates: start: 19970913
  4. STAVUDINE [Suspect]
     Indication: HIV INFECTION
     Dosage: 13SEP97-13FEB98,3MAR99-17JUN00,15DEC02-18DEC03,15DEC04-5MAR05,05MAR05-15AP06,
     Dates: start: 19970913
  5. ZIDOVUDINE [Suspect]
     Indication: HIV INFECTION
     Dosage: 12APR97-13SEP97,17JUN00-15DEC02,18DEC03-4FEB04,4FEB04-15DEC04,13FEB12
     Dates: start: 19970412
  6. LAMIVUDINE [Suspect]
     Indication: HIV INFECTION
     Dosage: 12AP97-13SP97,13FEB98-3MR99,3MR99-17JUN00,17JUN00-15DEC02,15DE02-18DE03,18DE03-04FB04,4FB04-15DEC04
     Dates: start: 19970412
  7. INDINAVIR [Suspect]
     Indication: HIV INFECTION
     Dates: start: 19980213, end: 19990303
  8. SAQUINAVIR [Suspect]
     Indication: HIV INFECTION
     Dosage: 3MAR99-17JUN00?16NOV09-15FEB10
     Dates: start: 19990303
  9. ABACAVIR [Suspect]
     Indication: HIV INFECTION
     Dosage: 17JUN00-15DEC02?28JUL08-14AUG08
     Dates: start: 20000617
  10. NEVIRAPINE [Suspect]
     Indication: HIV INFECTION
     Dosage: 17JUN00-15DEC02,?4FEB04-15DEC04
     Dates: start: 20000617
  11. TENOFOVIR DISOPROXIL FUMARATE [Suspect]
     Indication: HIV INFECTION
     Dosage: 15APR08-15DEC06?14AUG08-15JAN09?01SEP10-13FEB12
     Dates: start: 20080415
  12. EMTRICITABINE [Suspect]
     Indication: HIV INFECTION
     Dates: start: 20060415, end: 20061215
  13. LOPINAVIR [Suspect]
     Indication: HIV INFECTION
     Dosage: 9APR08-28JUL08?16NOV09-15FEB10
     Dates: start: 20080409
  14. RALTEGRAVIR [Suspect]
     Indication: HIV INFECTION
     Dosage: 28JUL08-14AUG08?14AUG08-15JAN09?15JAN09-16NOV09?1SEP10-13FEB2010
     Dates: start: 20080728
  15. DARUNAVIR [Suspect]
     Indication: HIV INFECTION
     Dosage: 15JAN09-16NOV09?14JUL10-01SEP10
     Dates: start: 20090115
  16. ENFUVIRTIDE [Suspect]
     Indication: HIV INFECTION
     Dates: start: 20100215, end: 20100714

REACTIONS (13)
  - Drug resistance [Unknown]
  - Pneumonia [Unknown]
  - Hydronephrosis [Unknown]
  - Meningitis viral [Unknown]
  - Cachexia [Unknown]
  - Renal hypoplasia [Unknown]
  - Aphasia [Unknown]
  - Urinary tract infection [Unknown]
  - Upper respiratory tract infection [Unknown]
  - Oral candidiasis [Unknown]
  - Breast abscess [Unknown]
  - Dyslipidaemia [Unknown]
  - Headache [Unknown]
